FAERS Safety Report 7037232-2 (Version None)
Quarter: 2010Q4

REPORT INFORMATION
  Report Type: 
  Country: None (occurrence: None)
  Receive Date: 20101011
  Receipt Date: 20100930
  Transmission Date: 20110411
  Serious: Yes (Hospitalization, Other)
  Sender: FDA-Public Use
  Company Number: US-ROCHE-730412

PATIENT
  Age: 12 Year
  Sex: Male

DRUGS (1)
  1. OSELTAMIVIR [Suspect]
     Route: 065

REACTIONS (4)
  - HAEMATEMESIS [None]
  - NAUSEA [None]
  - PETECHIAE [None]
  - VOMITING [None]
